FAERS Safety Report 20306625 (Version 2)
Quarter: 2022Q1

REPORT INFORMATION
  Report Type: Report from Study
  Country: US (occurrence: US)
  Receive Date: 20220106
  Receipt Date: 20220203
  Transmission Date: 20220423
  Serious: Yes (Death, Hospitalization, Other)
  Sender: FDA-Public Use
  Company Number: US-PRINSTON PHARMACEUTICAL INC.-2021PRN00443

PATIENT
  Age: 43 Year
  Sex: Female

DRUGS (14)
  1. HYDROCHLOROTHIAZIDE [Suspect]
     Active Substance: HYDROCHLOROTHIAZIDE
  2. PALBOCICLIB [Suspect]
     Active Substance: PALBOCICLIB
     Dosage: 125 MG, 1X/DAY
     Route: 048
     Dates: start: 20160927, end: 20160930
  3. MORPHINE SULFATE [Suspect]
     Active Substance: MORPHINE SULFATE
     Route: 042
  4. POTASSIUM CHLORIDE [Suspect]
     Active Substance: POTASSIUM CHLORIDE
  5. PERCOCET [Suspect]
     Active Substance: ACETAMINOPHEN\OXYCODONE HYDROCHLORIDE
  6. ROBINUL [Suspect]
     Active Substance: GLYCOPYRROLATE
     Route: 042
  7. MORPHINE [Concomitant]
     Active Substance: MORPHINE
  8. LORAZEPAM [Concomitant]
     Active Substance: LORAZEPAM
  9. GABAPENTIN [Concomitant]
     Active Substance: GABAPENTIN
  10. SCOPOLAMINE [Concomitant]
     Active Substance: SCOPOLAMINE
  11. PROCHLORPERAZINE [Concomitant]
     Active Substance: PROCHLORPERAZINE
  12. PEPCID [Concomitant]
     Active Substance: FAMOTIDINE
  13. AMLODIPINE [Concomitant]
     Active Substance: AMLODIPINE BESYLATE
  14. ATROPINE [Concomitant]
     Active Substance: ATROPINE

REACTIONS (13)
  - Hyponatraemia [Fatal]
  - Acute respiratory distress syndrome [Fatal]
  - Dehydration [Unknown]
  - Hyperkalaemia [Unknown]
  - Lymphocyte count decreased [Unknown]
  - Alanine aminotransferase increased [Unknown]
  - Ascites [Unknown]
  - Aspartate aminotransferase increased [Unknown]
  - Hypoalbuminaemia [Unknown]
  - Blood alkaline phosphatase increased [Unknown]
  - Hypercalcaemia [Unknown]
  - Blood bilirubin increased [Unknown]
  - Constipation [Unknown]

NARRATIVE: CASE EVENT DATE: 20160930
